FAERS Safety Report 5241977-4 (Version None)
Quarter: 2007Q1

REPORT INFORMATION
  Report Type: 
  Country: None (occurrence: None)
  Receive Date: 20070220
  Receipt Date: 20070208
  Transmission Date: 20070707
  Serious: Yes (Other)
  Sender: FDA-Public Use
  Company Number: US-PFIZER INC-2007011070

PATIENT
  Sex: Female
  Weight: 68 kg

DRUGS (5)
  1. CHANTIX [Suspect]
     Indication: SMOKING CESSATION THERAPY
     Dosage: FREQ:EVERY DAY
  2. INDOCIN [Concomitant]
  3. TOPAMAX [Concomitant]
  4. MS CONTIN [Concomitant]
  5. CELEBREX [Concomitant]

REACTIONS (6)
  - EPIDURAL ANAESTHESIA [None]
  - HEADACHE [None]
  - MALAISE [None]
  - NAUSEA [None]
  - PRESYNCOPE [None]
  - VISUAL DISTURBANCE [None]
